FAERS Safety Report 10630420 (Version 1)
Quarter: 2014Q4

REPORT INFORMATION
  Report Type: Spontaneous
  Country: US (occurrence: US)
  Receive Date: 20141205
  Receipt Date: 20141205
  Transmission Date: 20150529
  Serious: No
  Sender: FDA-Public Use
  Company Number: US-BRISTOL-MYERS SQUIBB COMPANY-21404645

PATIENT
  Age: 62 Year
  Sex: Female

DRUGS (1)
  1. METFORMIN HCL [Suspect]
     Active Substance: METFORMIN HYDROCHLORIDE
     Dosage: INTERRUPTED: 21AUG2014.?RESTARTED: 04SEP2014
     Dates: start: 20130910

REACTIONS (1)
  - Hypersensitivity [Unknown]
